FAERS Safety Report 6527806-7 (Version None)
Quarter: 2010Q1

REPORT INFORMATION
  Report Type: 
  Country: None (occurrence: None)
  Receive Date: 20100105
  Receipt Date: 20100105
  Transmission Date: 20100710
  Serious: Yes (Other)
  Sender: FDA-Public Use
  Company Number: None

PATIENT
  Sex: Male
  Weight: 73.0291 kg

DRUGS (2)
  1. DIVALPROEX ER 500 MG ANCHEN [Suspect]
     Indication: BIPOLAR DISORDER
     Dosage: 500 MG TWICE HS PO
     Route: 048
     Dates: start: 20090911
  2. DIVALPROEX ER 500 MG ANCHEN [Suspect]
     Indication: BIPOLAR DISORDER
     Dosage: 500 MG TWICE HS PO
     Route: 048
     Dates: start: 20091223

REACTIONS (4)
  - HEADACHE [None]
  - NAUSEA [None]
  - PRODUCT SUBSTITUTION ISSUE [None]
  - PRURITUS GENERALISED [None]
